FAERS Safety Report 9860285 (Version 1)
Quarter: 2014Q1

REPORT INFORMATION
  Report Type: Spontaneous
  Country: US (occurrence: US)
  Receive Date: 20140201
  Receipt Date: 20140201
  Transmission Date: 20141002
  Serious: No
  Sender: FDA-Public Use
  Company Number: US-B.I. PHARMACEUTICALS,INC./RIDGEFIELD-2014-BI-03253BP

PATIENT
  Age: 76 Year
  Sex: Female

DRUGS (1)
  1. AGGRENOX [Suspect]
     Indication: HEADACHE
     Dosage: DOSE PER APPLICATION: 25 MG / 200 MG;  50 MG / 400 MG
     Route: 048
     Dates: start: 2004

REACTIONS (2)
  - Nasopharyngitis [Not Recovered/Not Resolved]
  - Off label use [Unknown]
